FAERS Safety Report 6706543-X (Version None)
Quarter: 2010Q2

REPORT INFORMATION
  Report Type: 
  Country: None (occurrence: None)
  Receive Date: 20100503
  Receipt Date: 20100428
  Transmission Date: 20101027
  Serious: Yes (Death, Life-Threatening, Hospitalization)
  Sender: FDA-Public Use
  Company Number: PHHY2010CA01970

PATIENT
  Sex: Female

DRUGS (25)
  1. CLOZARIL [Suspect]
     Indication: SCHIZOPHRENIA
     Dosage: UNK
     Dates: start: 20031223
  2. CLOZARIL [Suspect]
     Dosage: 400 MG, UNK
     Route: 048
  3. CLOZARIL [Suspect]
     Dosage: 400 MG, UNK
     Route: 048
     Dates: start: 20091118
  4. ADVAIR DISKUS 100/50 [Concomitant]
     Dosage: 1 PUGG TWICE DAILY
  5. BISACODYL [Concomitant]
     Dosage: 5 MG, BID
     Route: 048
  6. BUDESONIDE [Concomitant]
     Dosage: 64 MCG/DOSE
  7. RIVOTRIL [Concomitant]
     Dosage: 0.25 MG TWICE DAILY
     Route: 048
  8. DEXAMETHASONE [Concomitant]
     Dosage: 4 MG ONCE DAILY
     Route: 048
  9. COLACE [Concomitant]
     Dosage: 100 MG, BID
     Route: 048
  10. DILAUDID [Concomitant]
     Dosage: 0.5 MG; EVERY 4 HOUR
     Route: 048
  11. FLUVIRAL [Concomitant]
     Dosage: UNK
     Dates: start: 20091203
  12. ATROVENT [Concomitant]
     Dosage: 2 PUFFS EVERY 4 HOURS
  13. ACILAC [Concomitant]
     Dosage: 15-30 ML TWICE DAILY
  14. HABITROL [Concomitant]
     Route: 061
  15. TAMIFLU [Concomitant]
  16. VENTOLIN [Concomitant]
  17. TYLENOL-500 [Concomitant]
  18. DULCO-LAXO [Concomitant]
  19. BRONCHOPHANE [Concomitant]
  20. ATIVAN [Concomitant]
  21. RELISTOR [Concomitant]
  22. PHOSPHATE ENEMA [Concomitant]
  23. STEMETIL [Concomitant]
  24. ROBITUSSIN [Concomitant]
  25. PHOSPHO-SODA [Concomitant]

REACTIONS (3)
  - DEATH [None]
  - LUNG NEOPLASM MALIGNANT [None]
  - METASTATIC NEOPLASM [None]
